FAERS Safety Report 9700116 (Version 2)
Quarter: 2013Q4

REPORT INFORMATION
  Report Type: Report from Study
  Country: US (occurrence: US)
  Receive Date: 20131121
  Receipt Date: 20131220
  Transmission Date: 20140711
  Serious: No
  Sender: FDA-Public Use
  Company Number: US-B.I. PHARMACEUTICALS,INC./RIDGEFIELD-2013-BI-36898BI

PATIENT
  Age: 61 Year
  Sex: Female

DRUGS (13)
  1. GILOTRIF [Suspect]
     Indication: NON-SMALL CELL LUNG CANCER
     Dosage: 30 MG
     Route: 048
     Dates: start: 201310
  2. GILOTRIF [Suspect]
     Indication: LUNG NEOPLASM MALIGNANT
     Dosage: 30 MG
     Route: 048
     Dates: start: 20131105
  3. FOLIC ACID [Concomitant]
  4. CALCIUM [Concomitant]
  5. CALCIUM [Concomitant]
  6. VITAMIN D [Concomitant]
  7. MINOCYCLINE [Concomitant]
     Dosage: 100 MG
  8. MINOCYCLINE [Concomitant]
     Dosage: 50 MG
  9. LOPERAMIDE [Concomitant]
     Dosage: FORMULATION: CAPLET
  10. EUCERIN CREME [Concomitant]
  11. PROTONIX DR [Concomitant]
  12. CVS VITAMIN D [Concomitant]
     Dosage: DOSE: 1000 UNIT
  13. CVS FOLIC ACID [Concomitant]
     Route: 048

REACTIONS (21)
  - Diarrhoea [Unknown]
  - Nausea [Unknown]
  - Dizziness [Unknown]
  - Diarrhoea [Recovered/Resolved]
  - Dyspepsia [Recovered/Resolved]
  - Rash macular [Not Recovered/Not Resolved]
  - Acne [Not Recovered/Not Resolved]
  - Eye pruritus [Not Recovered/Not Resolved]
  - Rhinorrhoea [Not Recovered/Not Resolved]
  - Dysphonia [Not Recovered/Not Resolved]
  - Productive cough [Not Recovered/Not Resolved]
  - Oropharyngeal pain [Not Recovered/Not Resolved]
  - Blood pressure increased [Not Recovered/Not Resolved]
  - Diarrhoea [Not Recovered/Not Resolved]
  - Acne [Not Recovered/Not Resolved]
  - Sensation of heaviness [Not Recovered/Not Resolved]
  - Skin fissures [Not Recovered/Not Resolved]
  - Skin atrophy [Not Recovered/Not Resolved]
  - Skin sensitisation [Not Recovered/Not Resolved]
  - Dry skin [Unknown]
  - Sensation of heaviness [Unknown]
